FAERS Safety Report 7769800-4 (Version None)
Quarter: 2011Q3

REPORT INFORMATION
  Report Type: 
  Country: None (occurrence: None)
  Receive Date: 20110922
  Receipt Date: 20110301
  Transmission Date: 20111222
  Serious: Yes (Other)
  Sender: FDA-Public Use
  Company Number: US-ASTRAZENECA-2009UW09415

PATIENT
  Age: 18309 Day
  Sex: Female

DRUGS (17)
  1. TOPIRAMATE [Concomitant]
     Dosage: 25 MG ONE TO TWO TABS PO BID
     Route: 048
     Dates: start: 20050913
  2. FIORICET EQ [Concomitant]
     Dosage: TAKE ONE OR TWO TABS PO Q4H PRN UPTO 6 TABS PER DAY
     Route: 048
     Dates: start: 20051226
  3. SIMVASTATIN [Concomitant]
     Route: 048
     Dates: start: 20050817
  4. ASPIRIN [Concomitant]
     Route: 048
     Dates: start: 20051019
  5. LORATADINE [Concomitant]
     Route: 048
     Dates: start: 20051226
  6. TERBINAFINE HCL [Concomitant]
     Route: 048
     Dates: start: 20060512
  7. MECLIZINE HCL [Concomitant]
     Indication: DIZZINESS
     Dosage: 25 MG TAKE ONE TABLET THREE -FOUR TIMES Q DAY
     Route: 048
     Dates: start: 20050913
  8. SEROQUEL [Suspect]
     Dosage: 25 TO 75 MG
     Route: 048
     Dates: start: 20051011
  9. SEROQUEL [Suspect]
     Dosage: 25 TO 75 MG
     Route: 048
     Dates: start: 20051011
  10. LOPID [Concomitant]
     Dates: start: 20060623
  11. SERTRALINE HYDROCHLORIDE [Concomitant]
     Dosage: TAKE TWO TABS PO QAM
     Route: 048
     Dates: start: 20060218
  12. WELLBUTRIN SR [Concomitant]
     Route: 048
     Dates: start: 20060218
  13. TRAMADOL HCL [Concomitant]
     Route: 048
     Dates: start: 20060521
  14. SEROQUEL [Suspect]
     Indication: INSOMNIA
     Route: 048
     Dates: start: 20050801
  15. PROPRANOLOL HYDROCHLORIDE [Concomitant]
     Indication: ANXIETY
     Dosage: 10 MG PRN
     Dates: start: 20060613
  16. SEROQUEL [Suspect]
     Indication: DEPRESSION
     Route: 048
     Dates: start: 20050801
  17. ALPRAZOLAM [Concomitant]
     Route: 048
     Dates: start: 20060613

REACTIONS (4)
  - PANCREATITIS [None]
  - DIABETIC COMA [None]
  - TYPE 2 DIABETES MELLITUS [None]
  - IMPAIRED FASTING GLUCOSE [None]
